FAERS Safety Report 11871752 (Version 4)
Quarter: 2017Q1

REPORT INFORMATION
  Report Type: Spontaneous
  Country: US (occurrence: US)
  Receive Date: 20151228
  Receipt Date: 20170214
  Transmission Date: 20170428
  Serious: Yes (Hospitalization, Other)
  Sender: FDA-Public Use
  Company Number: US-BAUSCH-BL-2015-021563

PATIENT
  Age: 60 Year
  Sex: Female
  Weight: 113.95 kg

DRUGS (18)
  1. LINZESS [Suspect]
     Active Substance: LINACLOTIDE
     Indication: GASTROINTESTINAL DISORDER
     Route: 048
     Dates: start: 201507
  2. LACTULOSE. [Suspect]
     Active Substance: LACTULOSE
     Indication: CHRONIC HEPATIC FAILURE
     Route: 048
     Dates: start: 201408, end: 2015
  3. NADOLOL. [Concomitant]
     Active Substance: NADOLOL
     Indication: PRODUCT USED FOR UNKNOWN INDICATION
  4. SPIRONOLACTONE. [Concomitant]
     Active Substance: SPIRONOLACTONE
     Indication: PRODUCT USED FOR UNKNOWN INDICATION
  5. INSULIN [Concomitant]
     Active Substance: INSULIN NOS
     Indication: TYPE 2 DIABETES MELLITUS
  6. LACTULOSE. [Suspect]
     Active Substance: LACTULOSE
     Indication: HEPATIC ENCEPHALOPATHY
  7. PLAVIX [Concomitant]
     Active Substance: CLOPIDOGREL BISULFATE
     Indication: PRODUCT USED FOR UNKNOWN INDICATION
  8. LACTULOSE. [Suspect]
     Active Substance: LACTULOSE
     Indication: HEPATIC CIRRHOSIS
  9. CIPRO [Concomitant]
     Active Substance: CIPROFLOXACIN HYDROCHLORIDE
     Indication: PRODUCT USED FOR UNKNOWN INDICATION
  10. HUMIRA [Concomitant]
     Active Substance: ADALIMUMAB
     Indication: PRODUCT USED FOR UNKNOWN INDICATION
  11. IMDUR [Concomitant]
     Active Substance: ISOSORBIDE MONONITRATE
     Indication: PRODUCT USED FOR UNKNOWN INDICATION
  12. XIFAXAN [Suspect]
     Active Substance: RIFAXIMIN
     Indication: HEPATIC CIRRHOSIS
     Route: 048
     Dates: start: 2014
  13. COLCHICINE. [Concomitant]
     Active Substance: COLCHICINE
     Indication: PRODUCT USED FOR UNKNOWN INDICATION
  14. DEMADEX [Concomitant]
     Active Substance: TORSEMIDE
     Indication: PRODUCT USED FOR UNKNOWN INDICATION
  15. DEXILANT [Concomitant]
     Active Substance: DEXLANSOPRAZOLE
     Indication: PRODUCT USED FOR UNKNOWN INDICATION
  16. LANTUS [Concomitant]
     Active Substance: INSULIN GLARGINE
     Indication: PRODUCT USED FOR UNKNOWN INDICATION
  17. XIFAXAN [Suspect]
     Active Substance: RIFAXIMIN
     Indication: CHRONIC HEPATIC FAILURE
     Route: 048
  18. XIFAXAN [Suspect]
     Active Substance: RIFAXIMIN
     Indication: HEPATIC ENCEPHALOPATHY

REACTIONS (8)
  - Vomiting projectile [Recovered/Resolved]
  - Intestinal obstruction [Recovered/Resolved]
  - Hernia [Recovered/Resolved]
  - Vomiting [Recovered/Resolved]
  - Surgery [Recovered/Resolved]
  - Ammonia abnormal [Not Recovered/Not Resolved]
  - Skin cancer [Not Recovered/Not Resolved]
  - Prescribed overdose [Not Recovered/Not Resolved]

NARRATIVE: CASE EVENT DATE: 201411
